FAERS Safety Report 15698359 (Version 1)
Quarter: 2018Q4

REPORT INFORMATION
  Report Type: Spontaneous
  Country: US (occurrence: US)
  Receive Date: 20181206
  Receipt Date: 20181206
  Transmission Date: 20190205
  Serious: Yes (Other)
  Sender: FDA-Public Use
  Company Number: None

PATIENT
  Age: 10 Week
  Sex: Male
  Weight: 6.3 kg

DRUGS (1)
  1. INFANTS IBUPROFEN [Suspect]
     Active Substance: IBUPROFEN
     Indication: IMMUNISATION
     Dosage: ?          QUANTITY:0.0423 OUNCE(S);?
     Route: 048
     Dates: start: 20181127, end: 20181205

REACTIONS (6)
  - Retching [None]
  - Abnormal behaviour [None]
  - Abdominal discomfort [None]
  - Diarrhoea [None]
  - Irritability [None]
  - Drug ineffective [None]

NARRATIVE: CASE EVENT DATE: 20181127
